FAERS Safety Report 5833992-4 (Version None)
Quarter: 2008Q3

REPORT INFORMATION
  Report Type: 
  Country: None (occurrence: None)
  Receive Date: 20080801
  Receipt Date: 20080801
  Transmission Date: 20090109
  Serious: Yes (Other)
  Sender: FDA-Public Use
  Company Number: None

PATIENT
  Age: 51 Year
  Sex: Female
  Weight: 120.2032 kg

DRUGS (1)
  1. MEDROXYPROGESTERONE [Suspect]
     Indication: MENSTRUAL CYCLE MANAGEMENT
     Dosage: 1 DAILY
     Dates: start: 20040701, end: 20080731

REACTIONS (4)
  - IRRITABILITY [None]
  - MENSTRUAL DISORDER [None]
  - PAIN [None]
  - PHARMACEUTICAL PRODUCT COMPLAINT [None]
